FAERS Safety Report 6465898-4 (Version None)
Quarter: 2009Q4

REPORT INFORMATION
  Report Type: 
  Country: None (occurrence: None)
  Receive Date: 20091202
  Receipt Date: 20091123
  Transmission Date: 20100525
  Serious: Yes (Other)
  Sender: FDA-Public Use
  Company Number: US-RB-025978-09

PATIENT
  Age: 49 Year
  Sex: Female

DRUGS (1)
  1. DELSYM CHILDRENS ORANGE [Suspect]
     Indication: COUGH
     Route: 048
     Dates: start: 20091120

REACTIONS (3)
  - BLOOD GLUCOSE INCREASED [None]
  - BLOOD PRESSURE INCREASED [None]
  - DRUG INEFFECTIVE [None]
